FAERS Safety Report 7522132-1 (Version None)
Quarter: 2011Q2

REPORT INFORMATION
  Report Type: 
  Country: None (occurrence: None)
  Receive Date: 20110603
  Receipt Date: 20110526
  Transmission Date: 20111010
  Serious: Yes (Hospitalization)
  Sender: FDA-Public Use
  Company Number: US-KINGPHARMUSA00001-K201100652

PATIENT
  Age: 61 Week
  Sex: Male

DRUGS (11)
  1. MICARDIS HCT [Suspect]
     Dosage: 1 DF, QD
  2. ALLOPURINOL [Suspect]
     Dosage: 300 MG, QD
  3. ADANCOR [Suspect]
     Dosage: 40 MG, QD
  4. ENALAPRIL MALEATE [Suspect]
     Dosage: 1 DF, QD
  5. INSULIN [Suspect]
  6. PYRIDOXINE HCL [Suspect]
  7. CORGARD [Suspect]
     Indication: HYPERTENSION
     Dosage: 80 MG, BID
     Route: 048
     Dates: start: 20110312
  8. LASIX [Suspect]
     Indication: HYPERTENSION
     Dosage: 80 MG, QD
     Route: 048
     Dates: start: 20110312, end: 20110324
  9. PLAVIX [Suspect]
     Dosage: 75 MG, QD
  10. ATORVASTATIN [Suspect]
     Dosage: 20 MG, QD
  11. REPAGLINIDE [Suspect]
     Dosage: 3 MG, QD

REACTIONS (7)
  - HAEMATOMA [None]
  - DYSPNOEA [None]
  - OEDEMA [None]
  - INJECTION SITE HAEMORRHAGE [None]
  - RALES [None]
  - THROMBOCYTOPENIA [None]
  - LEUKOPENIA [None]
